FAERS Safety Report 7294156-3 (Version None)
Quarter: 2011Q1

REPORT INFORMATION
  Report Type: 
  Country: None (occurrence: None)
  Receive Date: 20110215
  Receipt Date: 20110208
  Transmission Date: 20110831
  Serious: Yes (Other)
  Sender: FDA-Public Use
  Company Number: US-US-EMD SERONO, INC.-7033012

PATIENT
  Sex: Female

DRUGS (2)
  1. REBIF [Suspect]
     Indication: MULTIPLE SCLEROSIS
     Route: 058
     Dates: start: 20100326
  2. VESICARE [Concomitant]
     Indication: NEUROGENIC BLADDER

REACTIONS (7)
  - TEARFULNESS [None]
  - COGNITIVE DISORDER [None]
  - STRESS [None]
  - RETINAL DISORDER [None]
  - VITREOUS FLOATERS [None]
  - RETINAL TEAR [None]
  - HERPES VIRUS INFECTION [None]
